FAERS Safety Report 20665354 (Version 6)
Quarter: 2022Q2

REPORT INFORMATION
  Report Type: Spontaneous
  Country: JP (occurrence: JP)
  Receive Date: 20220401
  Receipt Date: 20220629
  Transmission Date: 20220720
  Serious: Yes (Death, Other)
  Sender: FDA-Public Use
  Company Number: JP-MSD-2203JPN003469J

PATIENT
  Sex: Female
  Weight: 62 kg

DRUGS (7)
  1. MOLNUPIRAVIR [Suspect]
     Active Substance: MOLNUPIRAVIR
     Indication: COVID-19 treatment
     Dosage: 800 MILLIGRAM, BID
     Route: 048
     Dates: start: 20220311
  2. CALONAL [Concomitant]
     Active Substance: ACETAMINOPHEN
     Dosage: 500 MILLIGRAM, BID
     Route: 048
     Dates: start: 20220310, end: 20220312
  3. HUSCODE [Concomitant]
     Active Substance: CHLORPHENIRAMINE MALEATE\DIHYDROCODEINE PHOSPHATE\METHYLEPHEDRINE HYDROCHLORIDE, DL-
     Dosage: 2 DOSAGE FORM, TID
     Route: 048
     Dates: start: 20220309, end: 20220312
  4. CARBOCYSTEINE [Concomitant]
     Active Substance: CARBOCYSTEINE
     Dosage: 500 MILLIGRAM, BID
     Route: 048
     Dates: start: 20220309, end: 20220315
  5. TRANSAMIN [Concomitant]
     Active Substance: TRANEXAMIC ACID
     Dosage: 250 MILLIGRAM, TID
     Route: 048
     Dates: start: 20220309, end: 20220315
  6. LOXOPROFEN SODIUM [Concomitant]
     Active Substance: LOXOPROFEN SODIUM
     Dosage: 60 MILLIGRAM, ONCE
     Route: 048
     Dates: start: 20220309, end: 20220315
  7. PREDONINE [Concomitant]
     Active Substance: PREDNISOLONE
     Dosage: UNK
     Route: 065

REACTIONS (8)
  - Toxic epidermal necrolysis [Not Recovered/Not Resolved]
  - Pulmonary alveolar haemorrhage [Fatal]
  - COVID-19 pneumonia [Unknown]
  - Pneumonia staphylococcal [Unknown]
  - Liver disorder [Unknown]
  - Blood pressure decreased [Recovering/Resolving]
  - Platelet count decreased [Unknown]
  - Acidosis [Unknown]

NARRATIVE: CASE EVENT DATE: 20220101
